FAERS Safety Report 10427438 (Version 1)
Quarter: 2014Q3

REPORT INFORMATION
  Report Type: Spontaneous
  Country: IR (occurrence: IR)
  Receive Date: 20140903
  Receipt Date: 20140903
  Transmission Date: 20150326
  Serious: Yes (Other)
  Sender: FDA-Public Use
  Company Number: IR-MYLAN-2014M1003089

PATIENT

DRUGS (2)
  1. CICLOSPORIN [Concomitant]
     Active Substance: CYCLOSPORINE
     Route: 065
  2. PREDNISOLONE. [Suspect]
     Active Substance: PREDNISOLONE
     Dosage: 15 MG, QD
     Route: 065

REACTIONS (5)
  - Cataract operation [None]
  - Retinal degeneration [None]
  - Chorioretinopathy [Recovered/Resolved with Sequelae]
  - Retinal detachment [None]
  - Renal transplant [None]
